FAERS Safety Report 4372883-5 (Version None)
Quarter: 2004Q2

REPORT INFORMATION
  Report Type: 
  Country: None (occurrence: None)
  Receive Date: 20040603
  Receipt Date: 20040513
  Transmission Date: 20050107
  Serious: Yes (Hospitalization)
  Sender: FDA-Public Use
  Company Number: A01200401622

PATIENT
  Age: 64 Year
  Sex: Male

DRUGS (5)
  1. ELOXATIN [Suspect]
     Indication: COLORECTAL CANCER
     Dosage: 130 MG OTHER; INTRAVENOUS NOS
     Route: 042
     Dates: start: 20040331, end: 20040331
  2. GRAINSTERON [Concomitant]
  3. DEXAMETHASONE [Concomitant]
  4. FOLIC ACID [Concomitant]
  5. FLUOROURACIL [Concomitant]

REACTIONS (7)
  - AGGRESSION [None]
  - BLOOD ALKALINE PHOSPHATASE INCREASED [None]
  - CONFUSIONAL STATE [None]
  - GAMMA-GLUTAMYLTRANSFERASE INCREASED [None]
  - LOSS OF CONSCIOUSNESS [None]
  - RESTLESSNESS [None]
  - STUPOR [None]
